FAERS Safety Report 7960875-6 (Version None)
Quarter: 2011Q4

REPORT INFORMATION
  Report Type: 
  Country: None (occurrence: None)
  Receive Date: 20111121
  Receipt Date: 20110901
  Transmission Date: 20120403
  Serious: Yes (Hospitalization)
  Sender: FDA-Public Use
  Company Number: 2011-14488

PATIENT
  Age: 48 Year
  Sex: Female

DRUGS (1)
  1. INFED [Suspect]
     Indication: ANAEMIA
     Dosage: UNK

REACTIONS (6)
  - HYPERSENSITIVITY [None]
  - HYPOTENSION [None]
  - CHOKING SENSATION [None]
  - FLUSHING [None]
  - BACK PAIN [None]
  - FEELING HOT [None]
